FAERS Safety Report 8067029-6 (Version None)
Quarter: 2012Q1

REPORT INFORMATION
  Report Type: 
  Country: None (occurrence: None)
  Receive Date: 20120124
  Receipt Date: 20120119
  Transmission Date: 20120608
  Serious: Yes (Other)
  Sender: FDA-Public Use
  Company Number: AT-ABBOTT-11P-009-0885435-00

PATIENT
  Sex: Male
  Weight: 96 kg

DRUGS (1)
  1. HUMIRA [Suspect]
     Indication: CROHN'S DISEASE
     Dosage: SINGLE DOSE OF 160MG
     Dates: start: 20110729, end: 20110729

REACTIONS (7)
  - ILEAL STENOSIS [None]
  - ABDOMINAL PAIN LOWER [None]
  - CROHN'S DISEASE [None]
  - ABDOMINAL PAIN [None]
  - ILEITIS [None]
  - ABSCESS INTESTINAL [None]
  - MESENTERIC LYMPHADENOPATHY [None]
